FAERS Safety Report 6280484-7 (Version None)
Quarter: 2009Q3

REPORT INFORMATION
  Report Type: 
  Country: None (occurrence: None)
  Receive Date: 20090724
  Receipt Date: 20080710
  Transmission Date: 20100115
  Serious: No
  Sender: FDA-Public Use
  Company Number: A0738269A

PATIENT
  Sex: Male

DRUGS (3)
  1. AVANDIA [Suspect]
     Route: 048
     Dates: end: 20070101
  2. METFORMIN HCL [Concomitant]
  3. DIABETA [Concomitant]
     Dosage: 2000MG PER DAY

REACTIONS (2)
  - BLOOD GLUCOSE INCREASED [None]
  - PAIN [None]
